FAERS Safety Report 11363399 (Version 5)
Quarter: 2015Q4

REPORT INFORMATION
  Report Type: Spontaneous
  Country: US (occurrence: US)
  Receive Date: 20150811
  Receipt Date: 20151123
  Transmission Date: 20160304
  Serious: Yes (Other)
  Sender: FDA-Public Use
  Company Number: US-ROCHE-1606882

PATIENT
  Sex: Male
  Weight: 98.06 kg

DRUGS (3)
  1. ESBRIET [Suspect]
     Active Substance: PIRFENIDONE
     Indication: IDIOPATHIC PULMONARY FIBROSIS
     Dosage: 3 CAPSULES
     Route: 048
     Dates: start: 20150727
  2. ESBRIET [Suspect]
     Active Substance: PIRFENIDONE
     Route: 065
     Dates: start: 201506
  3. OFEV [Concomitant]
     Active Substance: NINTEDANIB

REACTIONS (10)
  - Eye haemorrhage [Unknown]
  - Lymphadenitis [Recovered/Resolved]
  - Sleep disorder [Recovered/Resolved]
  - Lymph gland infection [Recovered/Resolved]
  - Fatigue [Unknown]
  - Eye disorder [Unknown]
  - Drug ineffective [Unknown]
  - Productive cough [Unknown]
  - Anxiety [Recovered/Resolved]
  - Malaise [Unknown]
